FAERS Safety Report 8010729-4 (Version None)
Quarter: 2011Q4

REPORT INFORMATION
  Report Type: 
  Country: None (occurrence: None)
  Receive Date: 20111228
  Receipt Date: 20111220
  Transmission Date: 20120403
  Serious: Yes (Other)
  Sender: FDA-Public Use
  Company Number: CA-JNJFOC-20111210982

PATIENT
  Sex: Male
  Weight: 73 kg

DRUGS (2)
  1. REMICADE [Suspect]
     Indication: SPONDYLITIS
     Dosage: 30 INFUSIONS TO DATE
  2. REMICADE [Suspect]
     Indication: CROHN'S DISEASE
     Dosage: 30 INFUSIONS TO DATE

REACTIONS (1)
  - NODULE [None]
